FAERS Safety Report 8869047 (Version 1)
Quarter: 2012Q4

REPORT INFORMATION
  Report Type: Spontaneous
  Country: DK (occurrence: None)
  Receive Date: 20121022
  Receipt Date: 20121022
  Transmission Date: 20130627
  Serious: Yes (Other)
  Sender: FDA-Public Use
  Company Number: 2012MA012436

PATIENT
  Age: 63 Year
  Sex: Male

DRUGS (5)
  1. IRINOTECAN HYDROCHLORIDE [Suspect]
     Indication: METASTATIC COLORECTAL CANCER
     Dosage: ; UNK ; UNK
  2. ELOXATIN (OXALIPLATIN) [Concomitant]
     Indication: METASTATIC COLORECTAL CANCER
     Dosage: 130 UNITS ; UNSPECIFIED ; UNK ; IV
     Route: 042
     Dates: start: 20080827, end: 20081008
  3. FLUOROURACIL [Suspect]
     Indication: METASTATIC COLORECTAL CANCER
     Dosage: ;UNK ; UNK
  4. FOLINIC ACID [Suspect]
     Indication: METASTATIC COLORECTAL CANCER
     Dosage: ; UNK : UNK
  5. CAPECITABINE [Concomitant]

REACTIONS (3)
  - Neurotoxicity [None]
  - Constipation [None]
  - Paraesthesia [None]
